FAERS Safety Report 6362502-0 (Version None)
Quarter: 2009Q3

REPORT INFORMATION
  Report Type: 
  Country: None (occurrence: None)
  Receive Date: 20090918
  Receipt Date: 20090601
  Transmission Date: 20100115
  Serious: No
  Sender: FDA-Public Use
  Company Number: US-ABBOTT-09P-163-0576989-00

PATIENT
  Weight: 118.04 kg

DRUGS (2)
  1. HUMIRA [Suspect]
     Indication: PSORIATIC ARTHROPATHY
     Dates: start: 20081001
  2. HUMIRA [Suspect]
     Indication: COLITIS ULCERATIVE

REACTIONS (2)
  - ERYTHEMA [None]
  - INJECTION SITE PAIN [None]
